FAERS Safety Report 7434913-3 (Version None)
Quarter: 2011Q2

REPORT INFORMATION
  Report Type: 
  Country: None (occurrence: None)
  Receive Date: 20110425
  Receipt Date: 20110413
  Transmission Date: 20111010
  Serious: Yes (Life-Threatening)
  Sender: FDA-Public Use
  Company Number: ES-ROCHE-771289

PATIENT
  Sex: Female
  Weight: 61.9 kg

DRUGS (7)
  1. AMILORIDE HYDROCHLORIDE [Concomitant]
     Dates: start: 20040101
  2. BEVACIZUMAB [Suspect]
     Indication: COLORECTAL CANCER
     Dosage: FORM: VIAL. LAST DOSE PRIOR TO SAE: 08 APRIL 2011.
     Route: 042
     Dates: start: 20100611
  3. SIMVASTATINA [Concomitant]
     Dates: start: 20100301
  4. OXALIPLATIN [Suspect]
     Indication: COLORECTAL CANCER
     Dosage: FORM: INFUSION. LAST DOSE PRIOR TO SAE: 08 APRIL 2011
     Route: 042
     Dates: start: 20100611
  5. CAPECITABINE [Suspect]
     Indication: COLORECTAL CANCER
     Dosage: FREQUENCY: DAILY FOR 14 DAYS
     Route: 048
     Dates: start: 20100611, end: 20110410
  6. CAPTOPRIL [Concomitant]
     Dates: start: 20050101
  7. HIDROSMIN [Concomitant]
     Dates: start: 20060101

REACTIONS (2)
  - DUODENITIS [None]
  - HEPATITIS TOXIC [None]
